FAERS Safety Report 12894397 (Version 3)
Quarter: 2016Q4

REPORT INFORMATION
  Report Type: Spontaneous
  Country: JP (occurrence: JP)
  Receive Date: 20161028
  Receipt Date: 20161205
  Transmission Date: 20170207
  Serious: Yes (Life-Threatening, Hospitalization, Other)
  Sender: FDA-Public Use
  Company Number: JP-SA-2016SA179848

PATIENT
  Age: 80 Year
  Sex: Male
  Weight: 58 kg

DRUGS (20)
  1. 5-FU [Suspect]
     Active Substance: FLUOROURACIL
     Indication: RECTAL CANCER
     Route: 040
     Dates: start: 20160617, end: 20160617
  2. CONTOMIN [Concomitant]
     Active Substance: CHLORPROMAZINE
     Route: 065
     Dates: start: 20160706
  3. FAMOTIDINE. [Concomitant]
     Active Substance: FAMOTIDINE
     Route: 051
     Dates: start: 20160617, end: 20160705
  4. ALOXI [Concomitant]
     Active Substance: PALONOSETRON HYDROCHLORIDE
     Route: 051
     Dates: start: 20160617, end: 20160705
  5. MICARDIS [Concomitant]
     Active Substance: TELMISARTAN
     Route: 048
     Dates: end: 20160619
  6. FEBURIC [Concomitant]
     Active Substance: FEBUXOSTAT
     Route: 065
     Dates: end: 20160619
  7. BLOPRESS [Concomitant]
     Active Substance: CANDESARTAN CILEXETIL
     Route: 065
     Dates: end: 20160827
  8. ELPLAT [Suspect]
     Active Substance: OXALIPLATIN
     Indication: RECTAL CANCER
     Route: 041
     Dates: start: 20160617, end: 20160617
  9. LEVOFOLINATE [Suspect]
     Active Substance: LEVOLEUCOVORIN CALCIUM
     Indication: RECTAL CANCER
     Route: 041
     Dates: start: 20160705, end: 20160705
  10. ELPLAT [Suspect]
     Active Substance: OXALIPLATIN
     Indication: RECTAL CANCER
     Route: 041
     Dates: start: 20160705, end: 20160705
  11. CARBOHYDRATES NOS/SODIUM LACTATE/SODIUM CHLORIDE/POTASSIUM CHLORIDE [Concomitant]
     Route: 065
     Dates: start: 20160706
  12. NORVASC [Concomitant]
     Active Substance: AMLODIPINE BESYLATE
     Route: 048
     Dates: end: 20160827
  13. 5-FU [Suspect]
     Active Substance: FLUOROURACIL
     Indication: RECTAL CANCER
     Route: 041
     Dates: start: 20160705, end: 20160705
  14. DEXART [Concomitant]
     Active Substance: DEXAMETHASONE SODIUM PHOSPHATE
     Route: 051
     Dates: start: 20160617, end: 20160705
  15. URINORM [Concomitant]
     Active Substance: BENZBROMARONE
     Route: 065
     Dates: end: 20160827
  16. 5-FU [Suspect]
     Active Substance: FLUOROURACIL
     Indication: RECTAL CANCER
     Route: 040
     Dates: start: 20160705, end: 20160705
  17. PITAVASTATIN CALCIUM [Concomitant]
     Active Substance: PITAVASTATIN CALCIUM
     Route: 065
     Dates: end: 20160827
  18. 5-FU [Suspect]
     Active Substance: FLUOROURACIL
     Indication: RECTAL CANCER
     Route: 041
     Dates: start: 20160617, end: 20160617
  19. LEVOFOLINATE [Suspect]
     Active Substance: LEVOLEUCOVORIN CALCIUM
     Indication: RECTAL CANCER
     Route: 041
     Dates: start: 20160617, end: 20160617
  20. POLARAMINE [Concomitant]
     Active Substance: DEXCHLORPHENIRAMINE MALEATE
     Route: 051
     Dates: start: 20160617, end: 20160705

REACTIONS (10)
  - Osmotic demyelination syndrome [Recovered/Resolved]
  - Vomiting [Recovering/Resolving]
  - Altered state of consciousness [Recovered/Resolved]
  - Diarrhoea [Recovering/Resolving]
  - Lactic acidosis [Not Recovered/Not Resolved]
  - Renal impairment [Recovering/Resolving]
  - Blood pressure increased [Recovering/Resolving]
  - Hepatic function abnormal [Recovered/Resolved]
  - Anaemia [Recovered/Resolved]
  - Platelet count decreased [Recovering/Resolving]

NARRATIVE: CASE EVENT DATE: 20160618
